FAERS Safety Report 5423491-6 (Version None)
Quarter: 2007Q3

REPORT INFORMATION
  Report Type: 
  Country: None (occurrence: None)
  Receive Date: 20070823
  Receipt Date: 20070814
  Transmission Date: 20080115
  Serious: Yes (Hospitalization, Other)
  Sender: FDA-Public Use
  Company Number: JP-BRISTOL-MYERS SQUIBB COMPANY-13055983

PATIENT
  Age: 45 Year
  Sex: Female

DRUGS (10)
  1. STOCRIN CAPS [Suspect]
     Indication: HIV INFECTION
     Route: 048
     Dates: start: 20040716, end: 20061010
  2. KALETRA [Suspect]
     Indication: HIV INFECTION
     Route: 048
     Dates: start: 20040716, end: 20061010
  3. VIREAD [Suspect]
     Indication: HIV INFECTION
     Route: 048
     Dates: start: 20040716, end: 20051106
  4. CRIXIVAN [Suspect]
     Indication: HIV INFECTION
     Route: 048
     Dates: start: 20040123, end: 20040629
  5. RETROVIR [Suspect]
     Indication: HIV INFECTION
     Route: 048
     Dates: start: 20040123, end: 20040629
  6. LANSOPRAZOLE [Suspect]
     Indication: NAUSEA
     Dates: end: 20040725
  7. FERROMIA [Suspect]
     Indication: ANAEMIA
     Route: 048
     Dates: end: 20040725
  8. NAPROXEN [Suspect]
     Indication: PYREXIA
     Dates: end: 20040725
  9. NAUZELIN [Suspect]
     Indication: NAUSEA
     Dates: end: 20040725
  10. EPIVIR [Concomitant]
     Dates: start: 20040123, end: 20040629

REACTIONS (5)
  - ANAEMIA [None]
  - HYPERLIPIDAEMIA [None]
  - LIVER DISORDER [None]
  - PYREXIA [None]
  - RASH GENERALISED [None]
